FAERS Safety Report 23163863 (Version 4)
Quarter: 2024Q1

REPORT INFORMATION
  Report Type: Spontaneous
  Country: US (occurrence: US)
  Receive Date: 20231109
  Receipt Date: 20240305
  Transmission Date: 20240410
  Serious: No
  Sender: FDA-Public Use
  Company Number: US-PFIZER INC-PV202300176206

PATIENT
  Age: 7 Year
  Sex: Female
  Weight: 18.141 kg

DRUGS (2)
  1. NGENLA [Suspect]
     Active Substance: SOMATROGON-GHLA
     Indication: Growth hormone deficiency
     Dosage: UNK, 2X/WEEK (DOSAGE 2 WEEKLY)
     Dates: start: 202310
  2. NGENLA [Suspect]
     Active Substance: SOMATROGON-GHLA
     Dosage: 11.6 MG, WEEKLY
     Dates: start: 20231024

REACTIONS (4)
  - Off label use [Unknown]
  - Injection site pain [Recovered/Resolved]
  - Injection site swelling [Not Recovered/Not Resolved]
  - Injection site erythema [Not Recovered/Not Resolved]

NARRATIVE: CASE EVENT DATE: 20231001
